FAERS Safety Report 16944306 (Version 1)
Quarter: 2019Q4

REPORT INFORMATION
  Report Type: Spontaneous
  Country: GB (occurrence: GB)
  Receive Date: 20191022
  Receipt Date: 20191022
  Transmission Date: 20200122
  Serious: Yes (Hospitalization)
  Sender: FDA-Public Use
  Company Number: GB-TEVA-2019-GB-1124445

PATIENT
  Age: 75 Year
  Sex: Female

DRUGS (11)
  1. OMEPRAZOLE. [Suspect]
     Active Substance: OMEPRAZOLE
     Dosage: 20 MILLIGRAM
     Route: 048
  2. CANDESARTAN. [Suspect]
     Active Substance: CANDESARTAN
     Dosage: 8 MILLIGRAM
     Route: 048
  3. AMLODIPINE [Concomitant]
     Active Substance: AMLODIPINE BESYLATE
     Dosage: 10 MILLIGRAM
     Route: 048
  4. ATORVASTATIN [Concomitant]
     Active Substance: ATORVASTATIN
     Dosage: 40 MILLIGRAM, NIGHT
     Route: 048
  5. ISOSORBIDE MONONITRATE. [Concomitant]
     Active Substance: ISOSORBIDE MONONITRATE
     Dosage: 90 MILLIGRAM
     Route: 048
  6. BENDROFLUMETHIAZIDE [Suspect]
     Active Substance: BENDROFLUMETHIAZIDE
     Dosage: 2.5 MILLIGRAM
     Route: 048
  7. RANOLAZINE. [Concomitant]
     Active Substance: RANOLAZINE
     Dosage: 1000 MILLIGRAM
     Route: 048
  8. ACETYLSALICYLIC ACID [Concomitant]
     Active Substance: ASPIRIN
     Dosage: 75 MILLIGRAM, MORNING
     Route: 048
  9. CARBOMERS [Concomitant]
     Dosage: 1 GTT
     Route: 031
  10. CANDESARTAN. [Suspect]
     Active Substance: CANDESARTAN
     Dosage: 4 MILLIGRAM
     Route: 048
  11. ATENOLOL. [Concomitant]
     Active Substance: ATENOLOL
     Dosage: MORNING, 100 MILLIGRAM
     Route: 048

REACTIONS (2)
  - Inappropriate antidiuretic hormone secretion [Unknown]
  - Hyponatraemia [Recovered/Resolved with Sequelae]

NARRATIVE: CASE EVENT DATE: 20190917
